FAERS Safety Report 24669172 (Version 2)
Quarter: 2024Q4

REPORT INFORMATION
  Report Type: Report from Study
  Country: US (occurrence: US)
  Receive Date: 20241127
  Receipt Date: 20241209
  Transmission Date: 20250115
  Serious: No
  Sender: ROCHE
  Company Number: US-ROCHE-10000141021

PATIENT
  Age: 24 Year
  Sex: Male
  Weight: 99.79 kg

DRUGS (8)
  1. XOLAIR [Suspect]
     Active Substance: OMALIZUMAB
     Indication: Urticaria
     Route: 030
     Dates: start: 2021
  2. XOLAIR [Suspect]
     Active Substance: OMALIZUMAB
     Indication: Food allergy
  3. XOLAIR [Suspect]
     Active Substance: OMALIZUMAB
     Indication: Idiopathic urticaria
  4. RINVOQ [Concomitant]
     Active Substance: UPADACITINIB
     Indication: Crohn^s disease
     Route: 048
     Dates: start: 202406
  5. CITALOPRAM [Concomitant]
     Active Substance: CITALOPRAM
     Indication: Generalised anxiety disorder
     Route: 048
     Dates: start: 202311
  6. ALLEGRA [Concomitant]
     Active Substance: FEXOFENADINE HYDROCHLORIDE
     Indication: Urticaria
     Dosage: IN THE MORNING AND AT NIGHT
     Route: 048
  7. FAMOTIDINE [Concomitant]
     Active Substance: FAMOTIDINE
     Indication: Urticaria
     Dosage: IN THE MORNING AND AT NIGHT
     Route: 048
     Dates: start: 202406
  8. MONTELUKAST [Concomitant]
     Active Substance: MONTELUKAST
     Indication: Urticaria
     Route: 048
     Dates: start: 2021

REACTIONS (6)
  - Off label use [Unknown]
  - Urticaria [Not Recovered/Not Resolved]
  - Clostridium difficile infection [Recovered/Resolved]
  - Pyrexia [Recovered/Resolved]
  - Lip swelling [Unknown]
  - Throat tightness [Unknown]

NARRATIVE: CASE EVENT DATE: 20210101
